FAERS Safety Report 24297113 (Version 1)
Quarter: 2024Q3

REPORT INFORMATION
  Report Type: Spontaneous
  Country: GB (occurrence: None)
  Receive Date: 20240909
  Receipt Date: 20240909
  Transmission Date: 20241017
  Serious: Yes (Other)
  Sender: ASTRAZENECA
  Company Number: 2024A201753

PATIENT
  Age: 56 Year
  Sex: Male

DRUGS (1)
  1. DAPAGLIFLOZIN [Suspect]
     Active Substance: DAPAGLIFLOZIN
     Indication: Type 2 diabetes mellitus
     Route: 048
     Dates: start: 20190820, end: 20240719

REACTIONS (4)
  - Phimosis [Recovered/Resolved]
  - Balanoposthitis [Recovered/Resolved]
  - Candida infection [Recovered/Resolved]
  - Penile ulceration [Recovered/Resolved]
